FAERS Safety Report 17969620 (Version 6)
Quarter: 2020Q4

REPORT INFORMATION
  Report Type: Report from Study
  Country: NL (occurrence: NL)
  Receive Date: 20200701
  Receipt Date: 20201202
  Transmission Date: 20210113
  Serious: Yes (Hospitalization)
  Sender: FDA-Public Use
  Company Number: NL-MYLANLABS-2020M1059303

PATIENT
  Age: 58 Year
  Sex: Female
  Weight: 99 kg

DRUGS (23)
  1. OMEPRAZOLE. [Concomitant]
     Active Substance: OMEPRAZOLE
     Indication: GASTRIC DISORDER
     Dosage: 40 MILLIGRAM, QD
     Route: 048
     Dates: start: 20200530
  2. PREDNISON [Concomitant]
     Active Substance: PREDNISONE
     Indication: PYODERMA GANGRENOSUM
     Dosage: 10 MILLIGRAM, QD
     Route: 048
     Dates: start: 20181001
  3. CEFTRIAXONE. [Concomitant]
     Active Substance: CEFTRIAXONE
     Dosage: UNK
  4. HYDROXYCHLOROQUINE [Concomitant]
     Active Substance: HYDROXYCHLOROQUINE
     Indication: RHEUMATOID ARTHRITIS
  5. DESLORATADINE. [Concomitant]
     Active Substance: DESLORATADINE
     Indication: HYPERSENSITIVITY
     Dosage: 5 MG, PRN
     Route: 048
     Dates: start: 20200602
  6. CLOBETASOL                         /00337102/ [Concomitant]
     Active Substance: CLOBETASOL
     Dosage: 0.25 MILLIGRAM PER MILLILITRE, QD
     Route: 048
     Dates: start: 20200602, end: 2020
  7. PARACETAMOL [Concomitant]
     Active Substance: ACETAMINOPHEN
     Indication: PAIN
     Dosage: 1000 MILLIGRAM, PRN
     Route: 048
     Dates: start: 20200602
  8. SARILUMAB [Suspect]
     Active Substance: SARILUMAB
     Dosage: 200 MG, QOW
     Dates: start: 20200509, end: 20200607
  9. BETAMETHASONE                      /00008504/ [Concomitant]
     Indication: PRURITUS
     Dosage: 1 MILLIGRAM, BID
     Route: 061
     Dates: start: 20200602, end: 2020
  10. HYALURON                           /00567502/ [Concomitant]
     Indication: URTICARIA
  11. HYDROXYCHLOROQUINE [Concomitant]
     Active Substance: HYDROXYCHLOROQUINE
     Indication: POLYNEUROPATHY
     Dosage: 400 MILLIGRAM, QD
     Route: 048
     Dates: start: 2013, end: 20200402
  12. TRIAMCINOLONACETONIDE [Concomitant]
     Active Substance: TRIAMCINOLONE ACETONIDE
     Indication: PRURITUS
     Dosage: 1 MILLIGRAM, BID
     Route: 061
     Dates: start: 20200530, end: 2020
  13. CALCIUM CARBONATE AND VITAMIN D [Concomitant]
     Active Substance: CALCIUM CARBONATE\VITAMIN D
     Indication: OSTEOPOROSIS
     Dosage: 500 MILLIGRAM, QD
     Route: 048
     Dates: start: 20200602
  14. CLINDAMYCIN. [Suspect]
     Active Substance: CLINDAMYCIN
     Indication: PRODUCT USED FOR UNKNOWN INDICATION
     Dosage: UNK
  15. DESLORATADINE. [Concomitant]
     Active Substance: DESLORATADINE
     Indication: URTICARIA
  16. FUCIDINE                           /00065701/ [Concomitant]
     Active Substance: FUSIDIC ACID
     Indication: IMPETIGO
  17. TRIAMCINOLONACETONIDE [Concomitant]
     Active Substance: TRIAMCINOLONE ACETONIDE
     Indication: URTICARIA
  18. HYALURON                           /00567502/ [Concomitant]
     Indication: PRURITUS
     Dosage: 0.15 MILLIGRAM, Q8H (1 DROP 3 X PER DAY)
     Route: 031
     Dates: start: 20200602, end: 2020
  19. CLINDAMYCIN. [Suspect]
     Active Substance: CLINDAMYCIN
     Dosage: UNK
  20. SARILUMAB [Suspect]
     Active Substance: SARILUMAB
     Indication: RHEUMATOID ARTHRITIS
     Dosage: 200 MG, QOW
     Dates: start: 20200305, end: 20200508
  21. SARILUMAB [Suspect]
     Active Substance: SARILUMAB
     Dosage: 150 MG, QOW
     Dates: start: 20200608
  22. BETAMETHASONE                      /00008504/ [Concomitant]
     Indication: URTICARIA
  23. FUCIDINE                           /00065701/ [Concomitant]
     Active Substance: FUSIDIC ACID
     Indication: ANTIBIOTIC THERAPY
     Dosage: 1 MILLIGRAM, Q8H (APPLY 3 X PER DAY)
     Route: 061
     Dates: start: 20200602, end: 2020

REACTIONS (4)
  - Respiratory tract infection [Recovering/Resolving]
  - Upper respiratory tract infection bacterial [Recovered/Resolved]
  - Tissue infiltration [Unknown]
  - Injection site extravasation [Unknown]

NARRATIVE: CASE EVENT DATE: 2020
